FAERS Safety Report 14187206 (Version 2)
Quarter: 2017Q4

REPORT INFORMATION
  Report Type: Spontaneous
  Country: US (occurrence: US)
  Receive Date: 20171114
  Receipt Date: 20171211
  Transmission Date: 20180321
  Serious: No
  Sender: FDA-Public Use
  Company Number: US-CELGENEUS-USA-20171103250

PATIENT
  Age: 65 Year
  Sex: Male
  Weight: 93.93 kg

DRUGS (1)
  1. POMALYST [Suspect]
     Active Substance: POMALIDOMIDE
     Indication: PLASMA CELL MYELOMA
     Dosage: 4 MILLIGRAM
     Route: 048
     Dates: start: 201706

REACTIONS (6)
  - Peripheral swelling [Recovered/Resolved]
  - Joint swelling [Recovered/Resolved]
  - Dysgeusia [Not Recovered/Not Resolved]
  - Ear infection [Unknown]
  - Weight increased [Unknown]
  - Tenderness [Recovered/Resolved]

NARRATIVE: CASE EVENT DATE: 2017
